FAERS Safety Report 12081204 (Version 1)
Quarter: 2016Q1

REPORT INFORMATION
  Report Type: Spontaneous
  Country: US (occurrence: US)
  Receive Date: 20160216
  Receipt Date: 20160216
  Transmission Date: 20160526
  Serious: No
  Sender: FDA-Public Use
  Company Number: US-MEDA-2016020016

PATIENT
  Sex: Female
  Weight: 61 kg

DRUGS (4)
  1. SOMA [Suspect]
     Active Substance: CARISOPRODOL
     Indication: HYPOTONIA
  2. IBUPROFEN. [Concomitant]
     Active Substance: IBUPROFEN
  3. SKELAXIN [Concomitant]
     Active Substance: METAXALONE
     Indication: FACIAL SPASM
  4. CELEBREX [Concomitant]
     Active Substance: CELECOXIB
     Indication: NEURALGIA

REACTIONS (1)
  - Fatigue [Unknown]
